FAERS Safety Report 5138849-2 (Version None)
Quarter: 2006Q4

REPORT INFORMATION
  Report Type: 
  Country: None (occurrence: None)
  Receive Date: 20061030
  Receipt Date: 20060502
  Transmission Date: 20070319
  Serious: No
  Sender: FDA-Public Use
  Company Number: US-GLAXOSMITHKLINE-A0604104A

PATIENT
  Age: 5 Year
  Sex: Male

DRUGS (5)
  1. ADVAIR HFA [Suspect]
     Indication: ASTHMA
     Dosage: 1PUFF UNKNOWN
     Route: 055
     Dates: start: 20050101, end: 20050101
  2. FLOVENT [Suspect]
     Indication: ASTHMA
     Dosage: 2PUFF TWICE PER DAY
     Route: 055
     Dates: start: 20050101
  3. ALBUTEROL [Concomitant]
  4. ZYRTEC [Concomitant]
  5. CLARITIN [Concomitant]

REACTIONS (4)
  - COUGH [None]
  - DRUG INEFFECTIVE [None]
  - HYPERSENSITIVITY [None]
  - WHEEZING [None]
